FAERS Safety Report 8823328 (Version 1)
Quarter: 2012Q4

REPORT INFORMATION
  Report Type: 
  Country: US (occurrence: US)
  Receive Date: 20121003
  Receipt Date: 20121003
  Transmission Date: 20130627
  Serious: Yes (Death)
  Sender: FDA-Public Use
  Company Number: US-UCBSA-067732

PATIENT
  Sex: Male

DRUGS (1)
  1. HYDROCODONE-ACETAMINOPHEN [Suspect]
     Dosage: UNKNOWN DOSE
     Route: 045

REACTIONS (2)
  - Histiocytosis haematophagic [Fatal]
  - Drug abuse [Unknown]
